FAERS Safety Report 8182569-7 (Version None)
Quarter: 2012Q1

REPORT INFORMATION
  Report Type: 
  Country: None (occurrence: None)
  Receive Date: 20120305
  Receipt Date: 20070731
  Transmission Date: 20120608
  Serious: No
  Sender: FDA-Public Use
  Company Number: 2007BI016302

PATIENT
  Age: 31 Year
  Sex: Female

DRUGS (2)
  1. TYSABRI [Suspect]
     Indication: MULTIPLE SCLEROSIS
     Route: 042
     Dates: start: 20050121
  2. TYSABRI [Suspect]
     Route: 042
     Dates: start: 20061212, end: 20071210

REACTIONS (4)
  - HYPERSENSITIVITY [None]
  - URTICARIA [None]
  - PRURITUS [None]
  - LIP SWELLING [None]
